FAERS Safety Report 4429682-5 (Version None)
Quarter: 2004Q3

REPORT INFORMATION
  Report Type: 
  Country: None (occurrence: None)
  Receive Date: 20040816
  Receipt Date: 20040803
  Transmission Date: 20050211
  Serious: Yes (Hospitalization)
  Sender: FDA-Public Use
  Company Number: 163-20785-04070006

PATIENT
  Age: 60 Year
  Sex: Male
  Weight: 72.5755 kg

DRUGS (14)
  1. THALOMID [Suspect]
     Indication: MULTIPLE MYELOMA
     Dosage: SEE IMAGE, ORAL
     Route: 048
     Dates: start: 20040507, end: 20040501
  2. THALOMID [Suspect]
     Indication: MULTIPLE MYELOMA
     Dosage: SEE IMAGE, ORAL
     Route: 048
     Dates: start: 20040501, end: 20040519
  3. THALOMID [Suspect]
     Indication: MULTIPLE MYELOMA
     Dosage: SEE IMAGE, ORAL
     Route: 048
     Dates: start: 20040520
  4. STEROIDS (CORTICOSTEROIDS) [Concomitant]
  5. OXYCONTIN [Concomitant]
  6. ATIVAN [Concomitant]
  7. DULCOLAX [Concomitant]
  8. FREELAX [Concomitant]
  9. MUCINEX (GUAIFENESIN) [Concomitant]
  10. COMBIVENT [Concomitant]
  11. ZOMETA [Concomitant]
  12. LORAZEPAM [Concomitant]
  13. UNIPHYL [Concomitant]
  14. DECADRON [Concomitant]

REACTIONS (5)
  - BLOOD IMMUNOGLOBULIN G ABNORMAL [None]
  - BRONCHITIS [None]
  - CHRONIC OBSTRUCTIVE AIRWAYS DISEASE EXACERBATED [None]
  - CONSTIPATION [None]
  - TREMOR [None]
